FAERS Safety Report 6497821-0 (Version None)
Quarter: 2009Q4

REPORT INFORMATION
  Report Type: 
  Country: None (occurrence: None)
  Receive Date: 20091125
  Receipt Date: 20090219
  Transmission Date: 20100525
  Serious: Yes (Hospitalization)
  Sender: FDA-Public Use
  Company Number: 2009BH002906

PATIENT
  Age: 62 Year
  Sex: Female

DRUGS (15)
  1. DIANEAL [Suspect]
     Indication: PERITONEAL DIALYSIS
     Dosage: IP
     Route: 033
     Dates: start: 20050101
  2. DIANEAL [Suspect]
     Indication: PERITONEAL DIALYSIS
     Dosage: IP
     Route: 033
     Dates: start: 20050101
  3. RENVELA [Concomitant]
  4. AMBIEN [Concomitant]
  5. VICODIN [Concomitant]
  6. REGLAN [Concomitant]
  7. CALCITRIOL [Concomitant]
  8. XANAX [Concomitant]
  9. ZOLOFT [Concomitant]
  10. ZETIA [Concomitant]
  11. GENTAMICIN [Concomitant]
  12. ASPIRIN [Concomitant]
  13. KLONOPIN [Concomitant]
  14. NEPHRO-VITE [Concomitant]
  15. FOLIC ACID [Concomitant]

REACTIONS (6)
  - DIARRHOEA [None]
  - NAUSEA [None]
  - PERITONEAL DIALYSIS [None]
  - PERITONEAL DIALYSIS COMPLICATION [None]
  - PERITONITIS [None]
  - VOMITING [None]
